FAERS Safety Report 9513580 (Version 1)
Quarter: 2013Q3

REPORT INFORMATION
  Report Type: Spontaneous
  Country: US (occurrence: US)
  Receive Date: 20130910
  Receipt Date: 20130910
  Transmission Date: 20140515
  Serious: Yes (Other)
  Sender: FDA-Public Use
  Company Number: US-TEVA-430694USA

PATIENT
  Sex: Female

DRUGS (8)
  1. PARAGARD 380A [Suspect]
     Indication: CONTRACEPTION
     Route: 015
     Dates: start: 20130505, end: 20130829
  2. CYANOCOBALAMIN [Concomitant]
     Indication: IMMUNE SYSTEM DISORDER
     Route: 048
  3. COLECALCIFEROL [Concomitant]
     Indication: IMMUNE SYSTEM DISORDER
     Route: 048
  4. OLEA EUROPAEA LEAF EXTRACT [Concomitant]
     Indication: IMMUNE SYSTEM DISORDER
     Route: 048
  5. LESITHIN [Concomitant]
     Indication: IMMUNE SYSTEM DISORDER
     Route: 048
  6. INOLE [Concomitant]
     Indication: IMMUNE SYSTEM DISORDER
     Route: 048
  7. CARBONOLE [Concomitant]
     Indication: IMMUNE SYSTEM DISORDER
     Route: 048
  8. LYCINDE [Concomitant]
     Indication: IMMUNE SYSTEM DISORDER
     Route: 048

REACTIONS (2)
  - Device dislocation [Recovered/Resolved]
  - Discomfort [Unknown]
